FAERS Safety Report 4533062-1 (Version None)
Quarter: 2004Q4

REPORT INFORMATION
  Report Type: 
  Country: None (occurrence: None)
  Receive Date: 20041221
  Receipt Date: 20041217
  Transmission Date: 20050328
  Serious: Yes (Death, Life-Threatening)
  Sender: FDA-Public Use
  Company Number: 200414751FR

PATIENT
  Age: 73 Year
  Sex: Female
  Weight: 41 kg

DRUGS (7)
  1. LOVENOX [Suspect]
     Indication: THROMBOSIS PROPHYLAXIS
     Route: 058
     Dates: start: 20041115, end: 20041125
  2. NEBCIN [Suspect]
     Route: 042
     Dates: start: 20041122
  3. TIBERAL [Suspect]
     Route: 042
     Dates: start: 20041122
  4. TRANXENE [Suspect]
     Route: 042
     Dates: start: 20041111
  5. AUGMENTIN '125' [Suspect]
     Route: 042
     Dates: start: 20041116, end: 20041122
  6. OMEPRAZOLE [Suspect]
     Route: 042
     Dates: start: 20041118
  7. SOLU-MEDROL [Concomitant]
     Dates: start: 20041122

REACTIONS (7)
  - DRUG HYPERSENSITIVITY [None]
  - GENERAL PHYSICAL HEALTH DETERIORATION [None]
  - HAEMORRHAGE [None]
  - PANCYTOPENIA [None]
  - RASH SCARLATINIFORM [None]
  - SMALL INTESTINAL RESECTION [None]
  - THROMBOCYTOPENIA [None]
